FAERS Safety Report 22819434 (Version 2)
Quarter: 2024Q1

REPORT INFORMATION
  Report Type: Report from Study
  Country: CA (occurrence: CA)
  Receive Date: 20230814
  Receipt Date: 20240307
  Transmission Date: 20240410
  Serious: Yes (Hospitalization, Other)
  Sender: FDA-Public Use
  Company Number: CA-UCBSA-2022026217

PATIENT
  Age: 77 Year
  Sex: Female

DRUGS (3)
  1. CERTOLIZUMAB PEGOL [Suspect]
     Active Substance: CERTOLIZUMAB PEGOL
     Indication: Ankylosing spondylitis
     Dosage: 400 MILLIGRAM, EV 2 WEEKS(QOW)
     Route: 058
     Dates: start: 20211201
  2. CERTOLIZUMAB PEGOL [Suspect]
     Active Substance: CERTOLIZUMAB PEGOL
     Dosage: 200 MILLIGRAM, EV 2 WEEKS(QOW)
     Route: 058
  3. BISOPROLOL [Concomitant]
     Active Substance: BISOPROLOL\BISOPROLOL FUMARATE
     Indication: Product used for unknown indication
     Dosage: UNK

REACTIONS (13)
  - Delirium [Unknown]
  - Intestinal obstruction [Unknown]
  - Fall [Unknown]
  - Rib fracture [Unknown]
  - Influenza [Unknown]
  - Cough [Unknown]
  - Pain [Unknown]
  - Musculoskeletal stiffness [Unknown]
  - Hypoaesthesia [Unknown]
  - Urinary tract infection [Unknown]
  - SARS-CoV-2 test positive [Unknown]
  - Cognitive disorder [Unknown]
  - Product dose omission issue [Unknown]

NARRATIVE: CASE EVENT DATE: 20220430
